FAERS Safety Report 4265809-6 (Version None)
Quarter: 2004Q1

REPORT INFORMATION
  Report Type: 
  Country: None (occurrence: None)
  Receive Date: 20040107
  Receipt Date: 20040107
  Transmission Date: 20041129
  Serious: Yes (Hospitalization)
  Sender: FDA-Public Use
  Company Number: None

PATIENT
  Age: 60 Year
  Sex: Male
  Weight: 83.4619 kg

DRUGS (1)
  1. WARFARIN SODIUM [Suspect]
     Indication: CARDIOMYOPATHY
     Dosage: 5 MG M-W-F ORAL
     Route: 048
     Dates: start: 20020207, end: 20040106

REACTIONS (1)
  - EPISTAXIS [None]
